FAERS Safety Report 8216363-5 (Version None)
Quarter: 2012Q1

REPORT INFORMATION
  Report Type: 
  Country: None (occurrence: None)
  Receive Date: 20120316
  Receipt Date: 20120313
  Transmission Date: 20120608
  Serious: Yes (Other)
  Sender: FDA-Public Use
  Company Number: PHHY2012CH012572

PATIENT
  Age: 20 Year
  Sex: Female

DRUGS (2)
  1. RITALIN [Suspect]
     Dosage: UNK UKN, OT
  2. RITALIN [Suspect]
     Dosage: 80 MG, PER DAY

REACTIONS (3)
  - LISTLESS [None]
  - CONFUSIONAL STATE [None]
  - FATIGUE [None]
